FAERS Safety Report 19176541 (Version 2)
Quarter: 2021Q2

REPORT INFORMATION
  Report Type: Spontaneous
  Country: ES (occurrence: ES)
  Receive Date: 20210423
  Receipt Date: 20210423
  Transmission Date: 20210717
  Serious: Yes (Death)
  Sender: FDA-Public Use
  Company Number: ES-PFIZER INC-2021429524

PATIENT
  Age: 82 Year
  Sex: Female

DRUGS (3)
  1. PREDNISONE. [Suspect]
     Active Substance: PREDNISONE
     Dosage: 10 MG, DAILY (OVER3?6WEEKS)
  2. RITUXIMAB. [Suspect]
     Active Substance: RITUXIMAB
     Indication: CHEMOTHERAPY
     Dosage: 1000 MG (TWO INFUSIONS, 1000 MG EACH, ADMINISTERED 14 DAYS APART)
     Route: 042
  3. PREDNISONE. [Suspect]
     Active Substance: PREDNISONE
     Dosage: 0.8 MG/KG, 1X/DAY, 3?6 WEEKS
     Route: 065

REACTIONS (1)
  - COVID-19 pneumonia [Fatal]
